FAERS Safety Report 13739530 (Version 2)
Quarter: 2017Q3

REPORT INFORMATION
  Report Type: Spontaneous
  Country: IT (occurrence: IT)
  Receive Date: 20170710
  Receipt Date: 20170725
  Transmission Date: 20171127
  Serious: Yes (Death, Hospitalization, Other)
  Sender: FDA-Public Use
  Company Number: IT-GILEAD-2017-0281840

PATIENT
  Age: 82 Year
  Sex: Male
  Weight: 67 kg

DRUGS (3)
  1. LAMIVUDINE. [Concomitant]
     Active Substance: LAMIVUDINE
     Indication: HEPATITIS B
     Dosage: 100 MG, QD
     Route: 048
     Dates: start: 20170410
  2. ZYDELIG [Suspect]
     Active Substance: IDELALISIB
     Indication: CHRONIC LYMPHOCYTIC LEUKAEMIA REFRACTORY
     Dosage: 150 MG, BID
     Route: 048
     Dates: start: 20170110, end: 20170621
  3. BISOPROLOL [Concomitant]
     Active Substance: BISOPROLOL
     Indication: HYPERTENSION
     Dosage: 7.5 MG, QD
     Route: 048

REACTIONS (3)
  - Pneumonia [Fatal]
  - Neutropenia [Fatal]
  - Pyrexia [Fatal]

NARRATIVE: CASE EVENT DATE: 20170614
